FAERS Safety Report 13639727 (Version 1)
Quarter: 2017Q2

REPORT INFORMATION
  Report Type: Spontaneous
  Country: US (occurrence: US)
  Receive Date: 20170609
  Receipt Date: 20170609
  Transmission Date: 20170830
  Serious: No
  Sender: FDA-Public Use
  Company Number: US-ROCHE-1487038

PATIENT
  Sex: Female

DRUGS (3)
  1. ESTRACE [Concomitant]
     Active Substance: ESTRADIOL
     Route: 067
  2. KLONOPIN [Suspect]
     Active Substance: CLONAZEPAM
     Indication: SEDATION
     Dosage: AT BEDTIME
     Route: 065
  3. ARMOUR THYROID [Concomitant]
     Active Substance: THYROID, PORCINE
     Route: 065

REACTIONS (4)
  - Dyspepsia [Not Recovered/Not Resolved]
  - Insomnia [Not Recovered/Not Resolved]
  - Dizziness [Not Recovered/Not Resolved]
  - Balance disorder [Unknown]
